FAERS Safety Report 5893537-X (Version None)
Quarter: 2008Q3

REPORT INFORMATION
  Report Type: 
  Country: None (occurrence: None)
  Receive Date: 20080923
  Receipt Date: 20080904
  Transmission Date: 20090109
  Serious: Yes (Hospitalization)
  Sender: FDA-Public Use
  Company Number: ES-NOVOPROD-279639

PATIENT
  Sex: Female

DRUGS (2)
  1. NOVOLOG MIX 70/30 [Suspect]
     Indication: DIABETES MELLITUS
     Dosage: 44 IU, TID 16/8/20 OR 20/8/16
     Dates: end: 20080915
  2. NOVOLOG MIX 70/30 [Suspect]
     Dosage: 82 IU, TID 36U/ML - 16U/ML - 30U/ML
     Dates: start: 20080915

REACTIONS (2)
  - BLOOD GLUCOSE INCREASED [None]
  - CEREBRAL INFARCTION [None]
